FAERS Safety Report 25953384 (Version 1)
Quarter: 2025Q4

REPORT INFORMATION
  Report Type: Report from Study
  Country: EU (occurrence: EU)
  Receive Date: 20251023
  Receipt Date: 20251023
  Transmission Date: 20260118
  Serious: Yes (Other)
  Sender: NOVARTIS
  Company Number: EU-002147023-NVSC2025HU163707

PATIENT
  Age: 65 Year
  Sex: Female

DRUGS (1)
  1. RIBOCICLIB [Suspect]
     Active Substance: RIBOCICLIB
     Indication: Cardiac disorder
     Dosage: UNK
     Route: 065

REACTIONS (2)
  - Electrocardiogram QT prolonged [Unknown]
  - Off label use [Unknown]
